FAERS Safety Report 5373400-3 (Version None)
Quarter: 2007Q2

REPORT INFORMATION
  Report Type: 
  Country: None (occurrence: None)
  Receive Date: 20070628
  Receipt Date: 20070328
  Transmission Date: 20071010
  Serious: No
  Sender: FDA-Public Use
  Company Number: US-BAUSCH-2007BL001044

PATIENT
  Age: 17 Year
  Sex: Male

DRUGS (3)
  1. ALAWAY (KETOTIFEN FUMARATE OPHTHALMIC SOLUTION) [Suspect]
     Indication: SEASONAL ALLERGY
     Route: 047
     Dates: start: 20070327, end: 20070327
  2. ALAWAY (KETOTIFEN FUMARATE OPHTHALMIC SOLUTION) [Suspect]
     Route: 047
     Dates: start: 20070327, end: 20070327
  3. ALAWAY (KETOTIFEN FUMARATE OPHTHALMIC SOLUTION) [Suspect]
     Indication: EYE PRURITUS
     Route: 047
     Dates: start: 20070327, end: 20070327

REACTIONS (1)
  - DRUG INEFFECTIVE [None]
